FAERS Safety Report 26143521 (Version 1)
Quarter: 2025Q4

REPORT INFORMATION
  Report Type: Spontaneous
  Country: CA (occurrence: CA)
  Receive Date: 20251211
  Receipt Date: 20251211
  Transmission Date: 20260118
  Serious: Yes (Other)
  Sender: JOHNSON AND JOHNSON
  Company Number: CA-JNJFOC-20251207121

PATIENT
  Sex: Male

DRUGS (15)
  1. TOPAMAX [Suspect]
     Active Substance: TOPIRAMATE
     Indication: Weight decreased
     Route: 048
  2. TOPAMAX [Suspect]
     Active Substance: TOPIRAMATE
     Indication: Neuropathy peripheral
     Route: 048
  3. ACETAMINOPHEN [Suspect]
     Active Substance: ACETAMINOPHEN
     Indication: Neuropathy peripheral
  4. DULOXETINE HYDROCHLORIDE [Suspect]
     Active Substance: DULOXETINE HYDROCHLORIDE
     Indication: Neuropathy peripheral
  5. DULOXETINE HYDROCHLORIDE [Suspect]
     Active Substance: DULOXETINE HYDROCHLORIDE
     Indication: Depression
  6. ESCITALOPRAM [Suspect]
     Active Substance: ESCITALOPRAM OXALATE
     Indication: Depression
  7. KETAMINE [Suspect]
     Active Substance: KETAMINE
     Indication: Neuropathy peripheral
     Route: 042
  8. KETAMINE [Suspect]
     Active Substance: KETAMINE
     Indication: Central pain syndrome
     Route: 042
  9. MORPHINE [Suspect]
     Active Substance: MORPHINE
     Indication: Neuropathy peripheral
  10. OXCARBAZEPINE [Suspect]
     Active Substance: OXCARBAZEPINE
     Indication: Neuropathy peripheral
  11. PREGABALIN [Suspect]
     Active Substance: PREGABALIN
     Indication: Neuropathy peripheral
  12. AMLODIPINE [Concomitant]
     Active Substance: AMLODIPINE BESYLATE
     Indication: Product used for unknown indication
  13. BUPROPION [Concomitant]
     Active Substance: BUPROPION
     Indication: Depression
  14. MEMANTINE [Concomitant]
     Active Substance: MEMANTINE
     Indication: Neuropathy peripheral
  15. VORTIOXETINE [Concomitant]
     Active Substance: VORTIOXETINE
     Indication: Depression

REACTIONS (4)
  - Drug ineffective for unapproved indication [Unknown]
  - Hallucination, visual [Unknown]
  - Treatment failure [Unknown]
  - Tremor [Unknown]
